FAERS Safety Report 9293093 (Version 1)
Quarter: 2013Q2

REPORT INFORMATION
  Report Type: Spontaneous
  Country: US (occurrence: None)
  Receive Date: 20130515
  Receipt Date: 20130515
  Transmission Date: 20140414
  Serious: Yes (Other)
  Sender: FDA-Public Use
  Company Number: None

PATIENT
  Age: 64 Year
  Sex: 0
  Weight: 65.77 kg

DRUGS (10)
  1. PROLIA [Suspect]
     Indication: OSTEOPOROSIS
     Dates: start: 20130502, end: 20130502
  2. LIBRAX [Concomitant]
  3. HYDROCODEINE [Concomitant]
  4. GABAPENTIN [Concomitant]
  5. HYDROCHLOROTHIAZIDE [Concomitant]
  6. CELEBREX [Concomitant]
  7. FISH OIL [Concomitant]
  8. POTASSIUM [Concomitant]
  9. VIT, D [Concomitant]
  10. CITRACEL [Concomitant]

REACTIONS (14)
  - Pain in extremity [None]
  - Bone pain [None]
  - Pain in jaw [None]
  - Hypoaesthesia [None]
  - Paraesthesia oral [None]
  - Headache [None]
  - Decreased appetite [None]
  - Asthenia [None]
  - Malaise [None]
  - Impaired work ability [None]
  - Vertigo [None]
  - Disorientation [None]
  - Eye disorder [None]
  - Gait disturbance [None]
